FAERS Safety Report 9643492 (Version 3)
Quarter: 2013Q4

REPORT INFORMATION
  Report Type: Report from Study
  Country: ES (occurrence: ES)
  Receive Date: 20131024
  Receipt Date: 20131112
  Transmission Date: 20140711
  Serious: Yes (Hospitalization, Other)
  Sender: FDA-Public Use
  Company Number: ES-GLAXOSMITHKLINE-B0931074A

PATIENT
  Age: 52 Year
  Sex: Male

DRUGS (7)
  1. OFATUMUMAB [Suspect]
     Indication: HODGKIN^S DISEASE
     Dosage: 1000MG CYCLIC
     Route: 042
     Dates: start: 20130607, end: 20130801
  2. ETOPOSIDE [Suspect]
     Indication: HODGKIN^S DISEASE
     Route: 042
     Dates: start: 20130607, end: 20130801
  3. METHYLPREDNISOLONE [Suspect]
     Indication: HODGKIN^S DISEASE
     Route: 042
     Dates: start: 20130607, end: 20130801
  4. CYTARABINE [Suspect]
     Indication: HODGKIN^S DISEASE
     Route: 042
     Dates: start: 20130607, end: 20130801
  5. CISPLATIN [Suspect]
     Indication: HODGKIN^S DISEASE
     Route: 042
     Dates: start: 20130607, end: 20130801
  6. ATORVASTATIN [Concomitant]
     Indication: HYPERCHOLESTEROLAEMIA
     Dosage: 10MG PER DAY
  7. OMEPRAZOL [Concomitant]
     Indication: PROPHYLAXIS
     Dosage: 20MG PER DAY
     Route: 048

REACTIONS (1)
  - Acute hepatitis B [Recovered/Resolved]
